FAERS Safety Report 8831167 (Version 2)
Quarter: 2012Q4

REPORT INFORMATION
  Report Type: 
  Country: US (occurrence: US)
  Receive Date: 20121009
  Receipt Date: 20121129
  Transmission Date: 20130627
  Serious: No
  Sender: FDA-Public Use
  Company Number: US-PFIZER INC-2012247465

PATIENT
  Sex: Female

DRUGS (2)
  1. CELEBREX [Suspect]
     Indication: DEGENERATIVE DISC DISEASE
     Dosage: UNK
  2. CELEBREX [Suspect]
     Indication: JOINT DYSFUNCTION

REACTIONS (2)
  - Intervertebral disc degeneration [Unknown]
  - Arthropathy [Unknown]
